FAERS Safety Report 26108076 (Version 2)
Quarter: 2025Q4

REPORT INFORMATION
  Report Type: Spontaneous
  Country: EU (occurrence: EU)
  Receive Date: 20251201
  Receipt Date: 20251202
  Transmission Date: 20260118
  Serious: No
  Sender: PFIZER
  Company Number: EU-PFIZER INC-PV202500136728

PATIENT
  Age: 8 Year
  Sex: Male
  Weight: 23 kg

DRUGS (2)
  1. GENOTROPIN [Suspect]
     Active Substance: SOMATROPIN
     Indication: Prader-Willi syndrome
     Dosage: 4 MG, TOTAL PER WEEK WITHOUT A DAY OFF/ 7 DAYS
     Route: 058
     Dates: start: 202401
  2. GENOTROPIN [Suspect]
     Active Substance: SOMATROPIN
     Dosage: 4 MG, TOTAL PER WEEK WITHOUT A DAY OFF/ 7 DAYS
     Route: 058
     Dates: start: 202401

REACTIONS (5)
  - Product quality issue [Unknown]
  - Device deployment issue [Unknown]
  - Product formulation issue [Unknown]
  - Device material issue [Unknown]
  - Drug dose omission by device [Unknown]

NARRATIVE: CASE EVENT DATE: 20251118
